FAERS Safety Report 19545214 (Version 2)
Quarter: 2021Q3

REPORT INFORMATION
  Report Type: Spontaneous
  Country: FR (occurrence: FR)
  Receive Date: 20210713
  Receipt Date: 20210727
  Transmission Date: 20211014
  Serious: Yes (Other)
  Sender: FDA-Public Use
  Company Number: FR-VER-202100098

PATIENT
  Age: 26 Year
  Sex: Male

DRUGS (1)
  1. TRIPTORELIN PAMOATE [Suspect]
     Active Substance: TRIPTORELIN PAMOATE
     Indication: HYPERANDROGENISM
     Route: 030
     Dates: start: 202011

REACTIONS (4)
  - Condition aggravated [Recovering/Resolving]
  - Suicide attempt [Recovering/Resolving]
  - Behaviour disorder [Recovering/Resolving]
  - Off label use [Unknown]

NARRATIVE: CASE EVENT DATE: 202011
